FAERS Safety Report 18509087 (Version 1)
Quarter: 2020Q4

REPORT INFORMATION
  Report Type: Spontaneous
  Country: US (occurrence: US)
  Receive Date: 20201117
  Receipt Date: 20201117
  Transmission Date: 20210114
  Serious: Yes (Death)
  Sender: FDA-Public Use
  Company Number: US-BIO PRODUCTS LABORATORY LTD-2095981

PATIENT
  Age: 51 Year
  Sex: Male

DRUGS (6)
  1. THERAPEUTIC ANTICOAGULATION (NOS) [Concomitant]
  2. CONVALESCENT PLASMA [Concomitant]
     Active Substance: HUMAN PLASMA
  3. HYDROXYCHLOROQUINE [Suspect]
     Active Substance: HYDROXYCHLOROQUINE
  4. HUMAN NORMAL IMMUNOGLOBULIN [Suspect]
     Active Substance: HUMAN IMMUNOGLOBULIN G
     Indication: COVID-19
     Route: 042
  5. METHYLPREDNISOLONE. [Concomitant]
     Active Substance: METHYLPREDNISOLONE
  6. OXYGEN. [Concomitant]
     Active Substance: OXYGEN

REACTIONS (3)
  - Off label use [Unknown]
  - Drug ineffective for unapproved indication [Unknown]
  - Retroperitoneal haemorrhage [Fatal]
